FAERS Safety Report 20186402 (Version 1)
Quarter: 2021Q4

REPORT INFORMATION
  Report Type: Spontaneous
  Country: US (occurrence: US)
  Receive Date: 20211215
  Receipt Date: 20211215
  Transmission Date: 20220304
  Serious: No
  Sender: FDA-Public Use
  Company Number: US-RECKITT BENCKISER HEALTHCARE INT LIMITED-RB-91301-2021

PATIENT
  Age: 81 Year
  Sex: Male

DRUGS (3)
  1. DELSYM [Suspect]
     Active Substance: DEXTROMETHORPHAN
     Indication: Product used for unknown indication
     Dosage: 10 MILLILITER, BID
     Route: 048
     Dates: start: 20210623
  2. DELSYM [Suspect]
     Active Substance: DEXTROMETHORPHAN
     Dosage: 20 MILLILITER, SINGLE
     Route: 048
     Dates: start: 20210624
  3. TYLENOL [Concomitant]
     Active Substance: ACETAMINOPHEN
     Indication: Pyrexia
     Dosage: UNK
     Route: 065

REACTIONS (1)
  - Accidental overdose [Recovered/Resolved]

NARRATIVE: CASE EVENT DATE: 20210624
